FAERS Safety Report 9769096 (Version 1)
Quarter: 2013Q4

REPORT INFORMATION
  Report Type: Spontaneous
  Country: US (occurrence: None)
  Receive Date: 20131216
  Receipt Date: 20131216
  Transmission Date: 20140711
  Serious: Yes (Hospitalization)
  Sender: FDA-Public Use
  Company Number: 2013P1021755

PATIENT
  Age: 24 Year
  Sex: Female

DRUGS (1)
  1. ERGOTAMINE [Suspect]

REACTIONS (3)
  - Headache [None]
  - Neck pain [None]
  - Photophobia [None]
